FAERS Safety Report 16351216 (Version 1)
Quarter: 2019Q2

REPORT INFORMATION
  Report Type: Spontaneous
  Country: US (occurrence: US)
  Receive Date: 20190524
  Receipt Date: 20190524
  Transmission Date: 20190711
  Serious: No
  Sender: FDA-Public Use
  Company Number: US-ZYDUS-020000

PATIENT
  Sex: Female

DRUGS (2)
  1. CARVEDILOL/CARVEDILOL HYDROCHLODRIDE [Concomitant]
     Indication: PRODUCT USED FOR UNKNOWN INDICATION
  2. TOPIRAMATE. [Suspect]
     Active Substance: TOPIRAMATE
     Indication: PRODUCT USE IN UNAPPROVED INDICATION
     Route: 048
     Dates: end: 20180424

REACTIONS (2)
  - Accidental exposure to product [Recovered/Resolved]
  - Product dispensing error [Recovered/Resolved]
